FAERS Safety Report 7007099-7 (Version None)
Quarter: 2010Q3

REPORT INFORMATION
  Report Type: 
  Country: None (occurrence: None)
  Receive Date: 20100920
  Receipt Date: 20100909
  Transmission Date: 20110219
  Serious: Yes (Other)
  Sender: FDA-Public Use
  Company Number: 2010US003748

PATIENT
  Age: 57 Year
  Sex: Male

DRUGS (4)
  1. PROGRAF [Suspect]
     Indication: RENAL TRANSPLANT
  2. MYCOPHENOLATE MOFETIL [Suspect]
     Indication: RENAL TRANSPLANT
  3. PREDNISONE [Suspect]
     Indication: RENAL TRANSPLANT
  4. THYMOGLOBULIN [Suspect]
     Indication: RENAL TRANSPLANT

REACTIONS (5)
  - GRANULOMA [None]
  - HISTOPLASMOSIS [None]
  - HYDRONEPHROSIS [None]
  - TUBULOINTERSTITIAL NEPHRITIS [None]
  - URETHRAL STENOSIS [None]
